FAERS Safety Report 7401793-1 (Version None)
Quarter: 2011Q2

REPORT INFORMATION
  Report Type: 
  Country: None (occurrence: None)
  Receive Date: 20110408
  Receipt Date: 20110327
  Transmission Date: 20111010
  Serious: No
  Sender: FDA-Public Use
  Company Number: US-PFIZER INC-2011067871

PATIENT
  Sex: Female

DRUGS (2)
  1. CELEBREX [Suspect]
     Indication: NEURALGIA
     Dosage: 200 MG, 2X/DAY
     Route: 048
     Dates: start: 20110326, end: 20110327
  2. CYCLOBENZ [Concomitant]
     Dosage: 5 MG, UNK

REACTIONS (4)
  - INSOMNIA [None]
  - ERYTHEMA [None]
  - ABDOMINAL PAIN UPPER [None]
  - PRURITUS GENERALISED [None]
